FAERS Safety Report 12208774 (Version 3)
Quarter: 2016Q2

REPORT INFORMATION
  Report Type: Spontaneous
  Country: US (occurrence: US)
  Receive Date: 20160324
  Receipt Date: 20160425
  Transmission Date: 20160815
  Serious: Yes (Hospitalization)
  Sender: FDA-Public Use
  Company Number: US-PFIZER INC-2016127857

PATIENT
  Age: 57 Year
  Sex: Female
  Weight: 68 kg

DRUGS (2)
  1. EFFEXOR XR [Suspect]
     Active Substance: VENLAFAXINE HYDROCHLORIDE
     Indication: STRESS
     Dosage: 37.5/1 (37.5 MG, DAILY)
     Dates: start: 20160310, end: 20160311
  2. CRESTOR [Concomitant]
     Active Substance: ROSUVASTATIN CALCIUM
     Indication: BLOOD CHOLESTEROL INCREASED
     Dosage: 10 MG, ONCE AT NIGHT

REACTIONS (6)
  - Nausea [Recovered/Resolved]
  - Middle insomnia [Unknown]
  - Product use issue [Recovered/Resolved]
  - Tremor [Recovered/Resolved]
  - Nervousness [Recovered/Resolved]
  - Dizziness [Recovered/Resolved]

NARRATIVE: CASE EVENT DATE: 20160310
